FAERS Safety Report 9367707 (Version 1)
Quarter: 2013Q2

REPORT INFORMATION
  Report Type: Spontaneous
  Country: US (occurrence: US)
  Receive Date: 20130625
  Receipt Date: 20130625
  Transmission Date: 20140414
  Serious: No
  Sender: FDA-Public Use
  Company Number: US-ASTELLAS-2012US007799

PATIENT
  Age: 80 Year
  Sex: Female

DRUGS (2)
  1. VESICARE [Suspect]
     Indication: HYPERTONIC BLADDER
     Dosage: 5 MG, EVERY EVENING
     Route: 048
     Dates: start: 20120911
  2. VESICARE [Suspect]
     Dosage: UNK
     Route: 048
     Dates: start: 20130228

REACTIONS (7)
  - Drug dose omission [Unknown]
  - Malaise [Unknown]
  - Incontinence [Unknown]
  - Nausea [Unknown]
  - Urine abnormality [Unknown]
  - Mental disorder [Unknown]
  - Dizziness [Unknown]
